FAERS Safety Report 13005849 (Version 11)
Quarter: 2020Q3

REPORT INFORMATION
  Report Type: Report from Study
  Country: DE (occurrence: DE)
  Receive Date: 20161207
  Receipt Date: 20200922
  Transmission Date: 20201102
  Serious: Yes (Death, Hospitalization, Other)
  Sender: FDA-Public Use
  Company Number: DE-INCYTE CORPORATION-2016IN007752

PATIENT

DRUGS (14)
  1. NOVAMINSULFON [Concomitant]
     Active Substance: METAMIZOLE
     Indication: PAIN
     Dosage: 1000 MG, UNK
     Route: 058
     Dates: start: 20160930
  2. JAKAVI [Suspect]
     Active Substance: RUXOLITINIB
     Indication: POLYCYTHAEMIA VERA
     Dosage: 20 MG, QD
     Route: 048
     Dates: start: 20170410, end: 20171123
  3. ASPIRIN. [Concomitant]
     Active Substance: ASPIRIN
     Indication: CORONARY ARTERY DISEASE
     Dosage: 100 (UNIT NOT REPORTED)
     Route: 048
     Dates: start: 20120828
  4. XARELTO [Concomitant]
     Active Substance: RIVAROXABAN
     Indication: CORONARY ARTERY DISEASE
     Dosage: 20 MG, UNK
     Route: 048
     Dates: start: 20160414
  5. PREDNISOLONE. [Concomitant]
     Active Substance: PREDNISOLONE
     Indication: SKIN ULCER
     Dosage: 4 MG, UNK
     Route: 048
     Dates: start: 20140306
  6. JAKAVI [Suspect]
     Active Substance: RUXOLITINIB
     Indication: JANUS KINASE 2 MUTATION
     Dosage: 20 MG, BID
     Route: 048
     Dates: start: 20160126, end: 20170409
  7. RAMILICH [Concomitant]
     Active Substance: RAMIPRIL
     Indication: HYPERTENSION
     Dosage: 10 MG, UNK
     Route: 048
     Dates: start: 20140306
  8. TAMSULOSIN [Concomitant]
     Active Substance: TAMSULOSIN
     Indication: BENIGN PROSTATIC HYPERPLASIA
     Dosage: 0.4 MG, UNK
     Route: 048
     Dates: start: 20150115
  9. BIFITERAL [Concomitant]
     Active Substance: LACTULOSE
     Indication: PRODUCT USED FOR UNKNOWN INDICATION
     Dosage: 15 ML, UNK
     Route: 048
     Dates: start: 20160930
  10. OXYCODON [Concomitant]
     Active Substance: OXYCODONE
     Indication: PRODUCT USED FOR UNKNOWN INDICATION
     Dosage: 30 MG, UNK
     Route: 065
  11. BISOPROLOL [Concomitant]
     Active Substance: BISOPROLOL
     Indication: HYPERTENSION
     Dosage: 5 MG, UNK
     Route: 048
     Dates: start: 20140306
  12. SIMVASTATIN. [Concomitant]
     Active Substance: SIMVASTATIN
     Indication: BLOOD CHOLESTEROL INCREASED
     Dosage: 30 MG, UNK
     Route: 048
     Dates: start: 20140306
  13. TORASEMID [Concomitant]
     Active Substance: TORSEMIDE
     Indication: POLYURIA
     Dosage: 10 MG, UNK
     Route: 048
     Dates: start: 20140306
  14. PANTOPRAZOL [Concomitant]
     Active Substance: PANTOPRAZOLE SODIUM
     Indication: PROPHYLAXIS
     Dosage: 40 MG, UNK
     Route: 048
     Dates: start: 20160930

REACTIONS (19)
  - Cardiomyopathy [Unknown]
  - Stasis dermatitis [Recovered/Resolved]
  - Aortic arteriosclerosis [Unknown]
  - Pyoderma gangrenosum [Recovered/Resolved]
  - Inappropriate schedule of product administration [Unknown]
  - Erythema [Unknown]
  - Cardiac failure [Recovered/Resolved]
  - Tricuspid valve sclerosis [Unknown]
  - Skin ulcer [Recovered/Resolved]
  - Chills [Unknown]
  - Gout [Not Recovered/Not Resolved]
  - Erysipelas [Recovered/Resolved]
  - Wound infection staphylococcal [Unknown]
  - Death [Fatal]
  - Ejection fraction decreased [Unknown]
  - Cardiomegaly [Unknown]
  - Acinetobacter infection [Unknown]
  - Peripheral swelling [Unknown]
  - Skin ulcer [Not Recovered/Not Resolved]

NARRATIVE: CASE EVENT DATE: 2016
